FAERS Safety Report 11714926 (Version 2)
Quarter: 2015Q4

REPORT INFORMATION
  Report Type: Spontaneous
  Country: US (occurrence: US)
  Receive Date: 20151109
  Receipt Date: 20151130
  Transmission Date: 20160304
  Serious: Yes (Hospitalization)
  Sender: FDA-Public Use
  Company Number: US-SMITH AND NEPHEW, INC-2015SMT00479

PATIENT
  Age: 76 Year
  Sex: Male
  Weight: 71.2 kg

DRUGS (5)
  1. HUMULIN INSULIN [Concomitant]
     Active Substance: INSULIN HUMAN
  2. CARBIDOPA / LEVODOPA [Concomitant]
     Active Substance: CARBIDOPA\LEVODOPA
  3. REGRANEX [Suspect]
     Active Substance: BECAPLERMIN
     Indication: SKIN ULCER
     Dosage: UNK UNK, 1X/DAY
     Route: 061
     Dates: start: 2015, end: 20151026
  4. ALLOPURINOL. [Concomitant]
     Active Substance: ALLOPURINOL
  5. GEMFIBROZIL. [Concomitant]
     Active Substance: GEMFIBROZIL

REACTIONS (4)
  - Application site cellulitis [Unknown]
  - Drug ineffective [Unknown]
  - Wound infection [Recovering/Resolving]
  - Osteomyelitis [Unknown]

NARRATIVE: CASE EVENT DATE: 2015
